FAERS Safety Report 8205160-2 (Version None)
Quarter: 2012Q1

REPORT INFORMATION
  Report Type: 
  Country: None (occurrence: None)
  Receive Date: 20120313
  Receipt Date: 20120307
  Transmission Date: 20120608
  Serious: Yes (Hospitalization)
  Sender: FDA-Public Use
  Company Number: DE-GLAXOSMITHKLINE-D0074757A

PATIENT
  Sex: Female
  Weight: 70 kg

DRUGS (4)
  1. FENTANYL [Concomitant]
     Indication: ANAESTHESIA PROCEDURE
     Route: 065
  2. MIDAZOLAM HCL [Concomitant]
     Indication: ANAESTHESIA PROCEDURE
     Route: 065
  3. PROPOFOL [Concomitant]
     Indication: ANAESTHESIA PROCEDURE
     Route: 065
  4. ZOFRAN [Suspect]
     Indication: PROCEDURAL NAUSEA
     Dosage: 4MG SINGLE DOSE
     Route: 042
     Dates: start: 20120228, end: 20120228

REACTIONS (4)
  - MUSCULAR WEAKNESS [None]
  - PARALYSIS [None]
  - BRADYCARDIA [None]
  - SINUS ARRHYTHMIA [None]
